FAERS Safety Report 7009344-0 (Version None)
Quarter: 2010Q3

REPORT INFORMATION
  Report Type: 
  Country: None (occurrence: None)
  Receive Date: 20100921
  Receipt Date: 20100903
  Transmission Date: 20110219
  Serious: Yes (Hospitalization)
  Sender: FDA-Public Use
  Company Number: 010731

PATIENT
  Age: 88 Year
  Sex: Male
  Weight: 65.9 kg

DRUGS (6)
  1. MACUGEN [Suspect]
     Indication: MACULAR DEGENERATION
     Dosage: 0.3MG, INTRAOCULAR
     Route: 031
     Dates: start: 20090317, end: 20090317
  2. CANDESARTAN CILEXETIL [Concomitant]
  3. ASPIRIN [Concomitant]
  4. ALLOPURINOL [Concomitant]
  5. CARVEDILOL [Concomitant]
  6. AMLODIN (AMLODIPINE BESTLATE) TABLET [Concomitant]

REACTIONS (1)
  - VITREOUS HAEMORRHAGE [None]
